FAERS Safety Report 10420463 (Version 1)
Quarter: 2014Q2

REPORT INFORMATION
  Report Type: Spontaneous
  Country: US (occurrence: None)
  Receive Date: 20140618
  Receipt Date: 20140618
  Transmission Date: 20141212
  Serious: Yes (Other)
  Sender: FDA-Public Use
  Company Number: 095919

PATIENT
  Age: 62 Year
  Sex: Female
  Weight: 48.5 kg

DRUGS (3)
  1. LACOSAMIDE [Suspect]
     Indication: CONVULSION
     Dosage: UNKNOWN THERAPY DATE
  2. CALCIUM [Concomitant]
  3. VITAMIN D/00107901 [Concomitant]

REACTIONS (2)
  - Pruritus [None]
  - Rash generalised [None]
